FAERS Safety Report 6046673-1 (Version None)
Quarter: 2009Q1

REPORT INFORMATION
  Report Type: 
  Country: None (occurrence: None)
  Receive Date: 20090122
  Receipt Date: 20090115
  Transmission Date: 20090719
  Serious: Yes (Other)
  Sender: FDA-Public Use
  Company Number: AU-AVENTIS-200910584GDDC

PATIENT
  Age: 57 Year
  Sex: Female

DRUGS (4)
  1. ARAVA [Suspect]
     Indication: RHEUMATOID ARTHRITIS
     Route: 048
     Dates: start: 20031114
  2. ASPIRIN [Concomitant]
     Dosage: DOSE: UNK
  3. SERETIDE [Concomitant]
     Indication: ASTHMA
     Dosage: DOSE: UNK
  4. VENTOLIN [Concomitant]
     Indication: ASTHMA
     Dosage: DOSE: UNK

REACTIONS (2)
  - CEREBROVASCULAR ACCIDENT [None]
  - HEMIPARESIS [None]
